FAERS Safety Report 19905001 (Version 2)
Quarter: 2022Q2

REPORT INFORMATION
  Report Type: Report from Study
  Country: US (occurrence: US)
  Receive Date: 20210930
  Receipt Date: 20220511
  Transmission Date: 20220721
  Serious: Yes (Hospitalization)
  Sender: FDA-Public Use
  Company Number: US-TAKEDA-2021TUS040702

PATIENT
  Sex: Female
  Weight: 81.63 kg

DRUGS (23)
  1. HUMAN IMMUNOGLOBULIN G [Suspect]
     Active Substance: HUMAN IMMUNOGLOBULIN G
     Indication: Immunodeficiency common variable
     Dosage: 20 GRAM, Q3WEEKS
     Route: 042
     Dates: start: 20191008
  2. NORETHINDRONE [Concomitant]
     Active Substance: NORETHINDRONE
  3. BENZTROPINE MESYLATE [Concomitant]
     Active Substance: BENZTROPINE MESYLATE
  4. FOLIC ACID [Concomitant]
     Active Substance: FOLIC ACID
  5. VRAYLAR [Concomitant]
     Active Substance: CARIPRAZINE
  6. SINGULAIR [Concomitant]
     Active Substance: MONTELUKAST SODIUM
  7. ATORVASTATIN [Concomitant]
     Active Substance: ATORVASTATIN
  8. HYDROXYZINE [Concomitant]
     Active Substance: HYDROXYZINE HYDROCHLORIDE
  9. IMITREX [Concomitant]
     Active Substance: SUMATRIPTAN SUCCINATE
  10. LISINOPRIL [Concomitant]
     Active Substance: LISINOPRIL
  11. LAMICTAL XR [Concomitant]
     Active Substance: LAMOTRIGINE
  12. METFORMIN HYDROCHLORIDE [Concomitant]
     Active Substance: METFORMIN HYDROCHLORIDE
  13. OXYCODONE [Concomitant]
     Active Substance: OXYCODONE
  14. COMBIVENT RESPIMAT [Concomitant]
     Active Substance: ALBUTEROL SULFATE\IPRATROPIUM BROMIDE
  15. TOPIRAMATE [Concomitant]
     Active Substance: TOPIRAMATE
  16. CYCLOBENZAPRINE [Concomitant]
     Active Substance: CYCLOBENZAPRINE
  17. EPINEPHRINE [Concomitant]
     Active Substance: EPINEPHRINE
  18. XOLAIR [Concomitant]
     Active Substance: OMALIZUMAB
  19. ZYRTEC [Concomitant]
     Active Substance: CETIRIZINE HYDROCHLORIDE
  20. LITHIUM CARBONATE [Concomitant]
     Active Substance: LITHIUM CARBONATE
  21. FIORICET [Concomitant]
     Active Substance: ACETAMINOPHEN\BUTALBITAL\CAFFEINE
  22. OMEPRAZOLE [Concomitant]
     Active Substance: OMEPRAZOLE
  23. COLCRYS [Concomitant]
     Active Substance: COLCHICINE

REACTIONS (3)
  - Musculoskeletal discomfort [Unknown]
  - Arthritis [Unknown]
  - Sinusitis [Unknown]
